FAERS Safety Report 4477812-1 (Version None)
Quarter: 2004Q4

REPORT INFORMATION
  Report Type: 
  Country: None (occurrence: None)
  Receive Date: 20041014
  Receipt Date: 20041001
  Transmission Date: 20050328
  Serious: Yes (Hospitalization)
  Sender: FDA-Public Use
  Company Number: 25324

PATIENT
  Age: 56 Year
  Sex: Female

DRUGS (1)
  1. ALDARA [Suspect]
     Indication: BASAL CELL CARCINOMA
     Dosage: (0.1 SACHET, 1 IN 1 DAY (S)), TOPICAL
     Route: 061
     Dates: start: 20040824, end: 20040916

REACTIONS (7)
  - ALANINE AMINOTRANSFERASE INCREASED [None]
  - ASPARTATE AMINOTRANSFERASE INCREASED [None]
  - GALLBLADDER CHOLESTEROLOSIS [None]
  - GASTROENTERITIS VIRAL [None]
  - HEPATIC CYST [None]
  - HEPATIC STEATOSIS [None]
  - HEPATOSPLENOMEGALY [None]
